FAERS Safety Report 11723337 (Version 4)
Quarter: 2015Q4

REPORT INFORMATION
  Report Type: Report from Study
  Country: JP (occurrence: JP)
  Receive Date: 20151111
  Receipt Date: 20151230
  Transmission Date: 20160304
  Serious: Yes (Death, Hospitalization, Congenital Anomaly, Other)
  Sender: FDA-Public Use
  Company Number: JP-INCYTE CORPORATION-2015IN005812

PATIENT
  Age: 59 Year
  Sex: Male

DRUGS (37)
  1. JAKAFI [Suspect]
     Active Substance: RUXOLITINIB
     Dosage: 5 MG, BID
     Route: 048
     Dates: start: 20150408, end: 20150422
  2. JAKAFI [Suspect]
     Active Substance: RUXOLITINIB
     Dosage: 10 MG, BID
     Route: 048
     Dates: start: 20150910, end: 20151020
  3. RED BLOOD CELLS [Concomitant]
     Active Substance: HUMAN RED BLOOD CELL
     Dosage: 2 IU, UNK
     Route: 041
     Dates: start: 20150819, end: 20150819
  4. RED BLOOD CELLS [Concomitant]
     Active Substance: HUMAN RED BLOOD CELL
     Dosage: 2 IU, UNK
     Route: 041
     Dates: start: 20150916, end: 20150916
  5. CALONAL [Concomitant]
     Active Substance: ACETAMINOPHEN
     Indication: PAIN
     Dosage: UNK
     Route: 065
  6. REBAMIPIDE [Concomitant]
     Active Substance: REBAMIPIDE
     Dosage: 7.5 MG, BID
     Route: 048
     Dates: start: 20150724, end: 20150909
  7. RED BLOOD CELLS [Concomitant]
     Active Substance: HUMAN RED BLOOD CELL
     Indication: PRIMARY MYELOFIBROSIS
     Dosage: 2 IU, UNK
     Route: 041
     Dates: start: 20150812, end: 20150812
  8. RED BLOOD CELLS [Concomitant]
     Active Substance: HUMAN RED BLOOD CELL
     Indication: ANAEMIA
     Dosage: 2 IU, UNK
     Route: 041
     Dates: start: 20150812, end: 20150812
  9. ENSURE [Concomitant]
     Active Substance: AMINO ACIDS\DEXTROSE\ELECTROLYTES NOS\SOYBEAN OIL\VITAMINS
     Indication: MYELOFIBROSIS
     Dosage: UNK
     Route: 048
     Dates: start: 20150909, end: 20150929
  10. KALIMATE [Concomitant]
     Active Substance: CALCIUM POLYSTYRENE SULFONATE
     Dosage: 25 G, UNK
     Route: 048
     Dates: start: 20150916, end: 20150923
  11. REBAMIPIDE [Concomitant]
     Active Substance: REBAMIPIDE
     Dosage: 5 MG, BID
     Route: 048
     Dates: start: 20150616, end: 20150629
  12. RED BLOOD CELLS [Concomitant]
     Active Substance: HUMAN RED BLOOD CELL
     Dosage: 2 IU, UNK
     Route: 041
     Dates: start: 20150821, end: 20150821
  13. RED BLOOD CELLS [Concomitant]
     Active Substance: HUMAN RED BLOOD CELL
     Dosage: 2 IU, UNK
     Route: 041
     Dates: start: 20150828, end: 20150828
  14. KALIMATE [Concomitant]
     Active Substance: CALCIUM POLYSTYRENE SULFONATE
     Indication: PRIMARY MYELOFIBROSIS
     Dosage: 50 G, UNK
     Route: 048
     Dates: start: 20150924, end: 20150928
  15. REBAMIPIDE [Concomitant]
     Active Substance: REBAMIPIDE
     Indication: GASTRIC ULCER
     Dosage: 5 MG, BID
     Route: 048
     Dates: start: 20150326, end: 20150422
  16. REBAMIPIDE [Concomitant]
     Active Substance: REBAMIPIDE
     Dosage: 10 MG, BID
     Route: 048
     Dates: start: 20150423, end: 20150615
  17. JAKAFI [Suspect]
     Active Substance: RUXOLITINIB
     Dosage: 10 MG, BID
     Route: 048
     Dates: start: 20150630, end: 20150723
  18. RED BLOOD CELLS [Concomitant]
     Active Substance: HUMAN RED BLOOD CELL
     Dosage: 2 IU, UNK
     Route: 041
     Dates: start: 20150901, end: 20150901
  19. ENSURE [Concomitant]
     Active Substance: AMINO ACIDS\DEXTROSE\ELECTROLYTES NOS\SOYBEAN OIL\VITAMINS
     Dosage: UNK
     Route: 048
     Dates: start: 20150909, end: 20150915
  20. KALIMATE [Concomitant]
     Active Substance: CALCIUM POLYSTYRENE SULFONATE
     Indication: MYELOFIBROSIS
     Dosage: 25 G, UNK
     Route: 048
     Dates: start: 20150916, end: 20150923
  21. JAKAFI [Suspect]
     Active Substance: RUXOLITINIB
     Dosage: 10 MG, BID
     Route: 048
     Dates: start: 20150423, end: 20150615
  22. RED BLOOD CELLS [Concomitant]
     Active Substance: HUMAN RED BLOOD CELL
     Dosage: 2 IU, UNK
     Route: 041
     Dates: start: 20150909, end: 20150909
  23. REBAMIPIDE [Concomitant]
     Active Substance: REBAMIPIDE
     Dosage: 10 MG, BID
     Route: 048
     Dates: start: 20150630, end: 20150723
  24. REBAMIPIDE [Concomitant]
     Active Substance: REBAMIPIDE
     Dosage: 10 MG, BID
     Route: 048
     Dates: start: 20150910, end: 20151020
  25. JAKAFI [Suspect]
     Active Substance: RUXOLITINIB
     Dosage: 5 MG, BID
     Route: 048
     Dates: start: 20150616, end: 20150629
  26. RED BLOOD CELLS [Concomitant]
     Active Substance: HUMAN RED BLOOD CELL
     Dosage: 2 IU, UNK
     Route: 041
     Dates: start: 20150825, end: 20150825
  27. RED BLOOD CELLS [Concomitant]
     Active Substance: HUMAN RED BLOOD CELL
     Dosage: 2 IU, UNK
     Route: 041
     Dates: start: 20150924, end: 20150924
  28. RED BLOOD CELLS [Concomitant]
     Active Substance: HUMAN RED BLOOD CELL
     Dosage: 2 IU, UNK
     Route: 041
     Dates: start: 20150929, end: 20150929
  29. ENSURE [Concomitant]
     Active Substance: AMINO ACIDS\DEXTROSE\ELECTROLYTES NOS\SOYBEAN OIL\VITAMINS
     Indication: PRIMARY MYELOFIBROSIS
     Dosage: UNK
     Route: 048
     Dates: start: 20150924, end: 20150929
  30. JAKAFI [Suspect]
     Active Substance: RUXOLITINIB
     Indication: PRIMARY MYELOFIBROSIS
     Dosage: 5 MG, BID
     Route: 048
     Dates: start: 20150326, end: 20150329
  31. JAKAFI [Suspect]
     Active Substance: RUXOLITINIB
     Dosage: 7.5 MG, BID
     Route: 048
     Dates: start: 20150724, end: 20150909
  32. RED BLOOD CELLS [Concomitant]
     Active Substance: HUMAN RED BLOOD CELL
     Indication: MYELOFIBROSIS
     Dosage: 2 IU, UNK
     Route: 041
     Dates: start: 20150723, end: 20150723
  33. RED BLOOD CELLS [Concomitant]
     Active Substance: HUMAN RED BLOOD CELL
     Dosage: 2 IU, UNK
     Route: 041
     Dates: start: 20150805, end: 20150805
  34. RED BLOOD CELLS [Concomitant]
     Active Substance: HUMAN RED BLOOD CELL
     Dosage: 2 IU, UNK
     Route: 041
     Dates: start: 20150723, end: 20150929
  35. KALIMATE [Concomitant]
     Active Substance: CALCIUM POLYSTYRENE SULFONATE
     Indication: HYPERKALAEMIA
     Dosage: 75 G, UNK
     Route: 048
     Dates: start: 20150929
  36. LAXOBERON [Concomitant]
     Active Substance: SODIUM PICOSULFATE
     Indication: PRODUCT USED FOR UNKNOWN INDICATION
     Dosage: UNK
     Route: 065
  37. TRAMAL [Concomitant]
     Active Substance: TRAMADOL
     Indication: PAIN
     Dosage: UNK
     Route: 065

REACTIONS (34)
  - Abdominal pain [Recovered/Resolved]
  - Dysgeusia [Not Recovered/Not Resolved]
  - Cough [Unknown]
  - Dyspnoea [Not Recovered/Not Resolved]
  - Visual impairment [Not Recovered/Not Resolved]
  - Head discomfort [Recovering/Resolving]
  - Leukaemia [Fatal]
  - Chills [Recovered/Resolved]
  - Productive cough [Not Recovered/Not Resolved]
  - Pyrexia [Not Recovered/Not Resolved]
  - Thermal burn [Not Recovered/Not Resolved]
  - Muscular weakness [Not Recovered/Not Resolved]
  - Hepatic function abnormal [Unknown]
  - Malaise [Not Recovered/Not Resolved]
  - Pain of skin [Not Recovered/Not Resolved]
  - Hypoxia [Not Recovered/Not Resolved]
  - Hyperkalaemia [Not Recovered/Not Resolved]
  - Night sweats [Not Recovered/Not Resolved]
  - Dry mouth [Not Recovered/Not Resolved]
  - Gastrointestinal ulcer [Unknown]
  - Sputum retention [Not Recovered/Not Resolved]
  - Blood creatinine increased [Not Recovered/Not Resolved]
  - Back pain [Not Recovered/Not Resolved]
  - Diarrhoea [Unknown]
  - Myeloblast percentage increased [Not Recovered/Not Resolved]
  - Decreased appetite [Not Recovered/Not Resolved]
  - Chest pain [Unknown]
  - Anaemia [Not Recovered/Not Resolved]
  - Headache [Not Recovered/Not Resolved]
  - Gingivitis [Not Recovered/Not Resolved]
  - Peripheral swelling [Not Recovered/Not Resolved]
  - Glossodynia [Not Recovered/Not Resolved]
  - Mouth haemorrhage [Unknown]
  - Drug ineffective [Unknown]

NARRATIVE: CASE EVENT DATE: 20150329
